FAERS Safety Report 17693346 (Version 1)
Quarter: 2020Q2

REPORT INFORMATION
  Report Type: Spontaneous
  Country: DE (occurrence: DE)
  Receive Date: 20200422
  Receipt Date: 20200422
  Transmission Date: 20200714
  Serious: Yes (Death, Disabling)
  Sender: FDA-Public Use
  Company Number: DE-TEVA-2020-DE-1224824

PATIENT

DRUGS (1)
  1. RISPERIDONE. [Suspect]
     Active Substance: RISPERIDONE
     Indication: DEMENTIA
     Dosage: 1 MILLIGRAM DAILY;
     Route: 065

REACTIONS (3)
  - Parkinsonism [Unknown]
  - Immobile [Unknown]
  - Pneumonia [Fatal]
